FAERS Safety Report 15529017 (Version 1)
Quarter: 2018Q4

REPORT INFORMATION
  Report Type: Report from Study
  Country: US (occurrence: US)
  Receive Date: 20181018
  Receipt Date: 20181018
  Transmission Date: 20190205
  Serious: No
  Sender: FDA-Public Use
  Company Number: US-AMGEN-USASL2018126679

PATIENT
  Age: 83 Year
  Sex: Female

DRUGS (2)
  1. REPATHA [Suspect]
     Active Substance: EVOLOCUMAB
     Indication: PRODUCT USED FOR UNKNOWN INDICATION
     Dosage: 140 MG, Q2WK
     Route: 058
  2. DUPIXENT [Concomitant]
     Active Substance: DUPILUMAB
     Dosage: UNK
     Dates: start: 201804

REACTIONS (10)
  - Head discomfort [Unknown]
  - Hyperhidrosis [Unknown]
  - Pruritus [Unknown]
  - Irritability [Unknown]
  - Nasal discomfort [Unknown]
  - Balance disorder [Unknown]
  - Dry skin [Unknown]
  - Insomnia [Unknown]
  - Hot flush [Unknown]
  - Gait disturbance [Unknown]

NARRATIVE: CASE EVENT DATE: 201805
